FAERS Safety Report 12393337 (Version 1)
Quarter: 2016Q2

REPORT INFORMATION
  Report Type: Spontaneous
  Country: US (occurrence: None)
  Receive Date: 20160520
  Receipt Date: 20160520
  Transmission Date: 20160815
  Serious: No
  Sender: FDA-Public Use
  Company Number: None

PATIENT
  Sex: Male

DRUGS (2)
  1. TRULICITY [Suspect]
     Active Substance: DULAGLUTIDE
  2. VICTOZA [Suspect]
     Active Substance: LIRAGLUTIDE

REACTIONS (4)
  - Anger [None]
  - Drug ineffective [None]
  - Malaise [None]
  - Blood glucose increased [None]
